FAERS Safety Report 22368908 (Version 2)
Quarter: 2023Q2

REPORT INFORMATION
  Report Type: Spontaneous
  Country: US (occurrence: US)
  Receive Date: 20230525
  Receipt Date: 20230604
  Transmission Date: 20230721
  Serious: Yes (Hospitalization, Other)
  Sender: FDA-Public Use
  Company Number: US-TEVA-2023-US-2889335

PATIENT
  Age: 5 Decade
  Sex: Male

DRUGS (1)
  1. POSACONAZOLE [Suspect]
     Active Substance: POSACONAZOLE
     Indication: Pulmonary blastomycosis
     Dosage: 300 MILLIGRAM DAILY; DELAYED-RELEASE TABLETS
     Route: 048

REACTIONS (2)
  - Pseudoaldosteronism [Recovered/Resolved]
  - Drug ineffective [Unknown]
